FAERS Safety Report 23651542 (Version 1)
Quarter: 2024Q1

REPORT INFORMATION
  Report Type: Spontaneous
  Country: US (occurrence: US)
  Receive Date: 20240320
  Receipt Date: 20240320
  Transmission Date: 20240410
  Serious: No
  Sender: FDA-Public Use
  Company Number: US-JNJFOC-20240330422

PATIENT
  Age: 57 Year
  Sex: Male

DRUGS (1)
  1. RYBREVANT [Suspect]
     Active Substance: AMIVANTAMAB-VMJW
     Indication: Non-small cell lung cancer
     Route: 042

REACTIONS (5)
  - Skin ulcer [Recovering/Resolving]
  - Paronychia [Recovering/Resolving]
  - Chapped lips [Unknown]
  - Dry mouth [Unknown]
  - Anal erythema [Unknown]
